FAERS Safety Report 26124686 (Version 1)
Quarter: 2025Q4

REPORT INFORMATION
  Report Type: Spontaneous
  Country: EU (occurrence: EU)
  Receive Date: 20251205
  Receipt Date: 20251205
  Transmission Date: 20260117
  Serious: Yes (Hospitalization)
  Sender: TEVA
  Company Number: None

PATIENT
  Age: 70 Year
  Sex: Male
  Weight: 75 kg

DRUGS (2)
  1. OXALIPLATIN [Suspect]
     Active Substance: OXALIPLATIN
     Indication: Adenocarcinoma of colon
     Dosage: 07/23/2025: 1ST CYCLE. 03/09/2025: 3RD CYCLE, OXALIPLATIN (7351A)
     Route: 042
     Dates: start: 20250723, end: 20250903
  2. CAPECITABINE [Suspect]
     Active Substance: CAPECITABINE
     Indication: Product used for unknown indication
     Dosage: CAPECITABINE (1224A)
     Route: 048
     Dates: start: 20250723, end: 20250903

REACTIONS (2)
  - Cellulitis [Recovered/Resolved]
  - Osteomyelitis [Recovering/Resolving]

NARRATIVE: CASE EVENT DATE: 20250909
